FAERS Safety Report 9086141 (Version 2)
Quarter: 2013Q1

REPORT INFORMATION
  Report Type: Spontaneous
  Country: TN (occurrence: TN)
  Receive Date: 20130218
  Receipt Date: 20130308
  Transmission Date: 20140127
  Serious: Yes (Hospitalization)
  Sender: FDA-Public Use
  Company Number: TN-AMGEN-TUNSP2013009936

PATIENT
  Age: 54 Year
  Sex: Female

DRUGS (3)
  1. ENBREL [Suspect]
     Indication: RHEUMATOID ARTHRITIS
     Dosage: 50 MG, WEEKLY
     Dates: start: 2000
  2. NSAID^S [Concomitant]
     Dosage: UNK
  3. ANALGESICS [Concomitant]
     Dosage: UNK

REACTIONS (3)
  - Bronchiectasis [Unknown]
  - Cough [Recovered/Resolved]
  - Mycobacterium tuberculosis complex test positive [Unknown]
